FAERS Safety Report 5623423-1 (Version None)
Quarter: 2008Q1

REPORT INFORMATION
  Report Type: 
  Country: None (occurrence: None)
  Receive Date: 20080212
  Receipt Date: 20080201
  Transmission Date: 20080703
  Serious: Yes (Death)
  Sender: FDA-Public Use
  Company Number: HK-WYE-G00983008

PATIENT
  Sex: Male

DRUGS (3)
  1. TYGACIL [Suspect]
     Indication: PNEUMONIA ASPIRATION
     Route: 042
  2. MEROPENEM [Concomitant]
  3. TAZOCIN [Suspect]
     Dosage: UNSPECIFIC
     Route: 042

REACTIONS (1)
  - DEATH [None]
